FAERS Safety Report 20245084 (Version 2)
Quarter: 2022Q3

REPORT INFORMATION
  Report Type: Other
  Country: DE (occurrence: None)
  Receive Date: 20211229
  Receipt Date: 20220708
  Transmission Date: 20221027
  Serious: No
  Sender: FDA-Public Use
  Company Number: DE-ROCHE-2950625

PATIENT
  Age: 35 Year
  Sex: Female
  Weight: 113 kg

DRUGS (18)
  1. OCRELIZUMAB [Suspect]
     Active Substance: OCRELIZUMAB
     Indication: Relapsing-remitting multiple sclerosis
     Route: 065
     Dates: start: 20210423, end: 20210423
  2. FOLIC ACID [Concomitant]
     Active Substance: FOLIC ACID
     Indication: Prophylaxis
     Dates: start: 201901
  3. LEVOTHYROXINE SODIUM [Concomitant]
     Active Substance: LEVOTHYROXINE SODIUM
     Dates: start: 201908
  4. VENLAFAXINE HYDROCHLORIDE [Concomitant]
     Active Substance: VENLAFAXINE HYDROCHLORIDE
     Dates: start: 2015
  5. METHYLDOPA [Concomitant]
     Active Substance: METHYLDOPA
     Dates: start: 20210916, end: 20211014
  6. METHYLDOPA [Concomitant]
     Active Substance: METHYLDOPA
     Dates: start: 20211015, end: 20211215
  7. METHYLDOPA [Concomitant]
     Active Substance: METHYLDOPA
     Dates: start: 20211216, end: 20220602
  8. ASPIRIN [Concomitant]
     Active Substance: ASPIRIN
     Indication: Prophylaxis
     Dates: start: 20211015, end: 20211029
  9. ASPIRIN [Concomitant]
     Active Substance: ASPIRIN
     Dates: start: 20211030, end: 20220512
  10. FERROUS SULFATE [Concomitant]
     Active Substance: FERROUS SULFATE
     Dates: start: 20211015, end: 20220530
  11. COMIRNATY [Concomitant]
     Active Substance: TOZINAMERAN
     Indication: Prophylaxis
     Dates: start: 20210825, end: 20210825
  12. COMIRNATY [Concomitant]
     Active Substance: TOZINAMERAN
     Dates: start: 20210915, end: 20210915
  13. CANDESARTAN [Concomitant]
     Active Substance: CANDESARTAN
     Dates: start: 201908, end: 20210916
  14. CANDESARTAN [Concomitant]
     Active Substance: CANDESARTAN
     Dates: start: 2018, end: 20210916
  15. DIMETHINDENE [Concomitant]
     Active Substance: DIMETHINDENE
     Indication: Prophylaxis
     Dates: start: 20210423, end: 20210423
  16. CORTISONE [Concomitant]
     Active Substance: CORTISONE
     Indication: Prophylaxis
     Dates: start: 20210423, end: 20210423
  17. ACETAMINOPHEN [Concomitant]
     Active Substance: ACETAMINOPHEN
     Indication: Prophylaxis
     Dates: start: 20210423, end: 20210423
  18. PERTUSSIS VACCINE [Concomitant]
     Active Substance: PERTUSSIS VACCINE
     Dates: start: 20220228

REACTIONS (1)
  - Maternal exposure before pregnancy [Unknown]
